FAERS Safety Report 6828518-2 (Version None)
Quarter: 2010Q3

REPORT INFORMATION
  Report Type: 
  Country: None (occurrence: None)
  Receive Date: 20100708
  Receipt Date: 20100708
  Transmission Date: 20110219
  Serious: No
  Sender: FDA-Public Use
  Company Number: None

PATIENT
  Age: 7 Year
  Sex: Male
  Weight: 41.2773 kg

DRUGS (1)
  1. NAMENDA [Suspect]
     Indication: ABNORMAL BEHAVIOUR
     Dosage: 10 MG DAILY PO
     Route: 048
     Dates: start: 20091119, end: 20100611

REACTIONS (6)
  - ABNORMAL BEHAVIOUR [None]
  - CONSTIPATION [None]
  - DECREASED EYE CONTACT [None]
  - DIARRHOEA [None]
  - DISTURBANCE IN ATTENTION [None]
  - MIGRAINE [None]
